FAERS Safety Report 4999844-7 (Version None)
Quarter: 2006Q2

REPORT INFORMATION
  Report Type: 
  Country: None (occurrence: None)
  Receive Date: 20060510
  Receipt Date: 20060510
  Transmission Date: 20061013
  Serious: Yes (Hospitalization)
  Sender: FDA-Public Use
  Company Number: None

PATIENT
  Age: 83 Year
  Sex: Male

DRUGS (15)
  1. ENOXAPARIN SODIUM [Suspect]
     Indication: ANTICOAGULANT THERAPY
     Dosage: 100 MG SQ BID
     Route: 058
     Dates: start: 20060228, end: 20060313
  2. WARFARIN SODIUM [Suspect]
     Indication: ANTICOAGULANT THERAPY
     Dosage: 5 MG PO TU-TH-SA-SU AND 7.5 MG M
     Route: 048
     Dates: start: 20050324, end: 20060313
  3. WARFARIN SODIUM [Suspect]
     Indication: ATRIAL FIBRILLATION
     Dosage: 5 MG PO TU-TH-SA-SU AND 7.5 MG M
     Route: 048
     Dates: start: 20050324, end: 20060313
  4. ADVAIR DISKUS 100/50 [Concomitant]
  5. ALBUTEROL SULFATE AUTOHALER [Concomitant]
  6. DILTIAZEM [Concomitant]
  7. ENALAPRIL MALEATE [Concomitant]
  8. LOVENOX [Concomitant]
  9. LASIX [Concomitant]
  10. LORATADINE [Concomitant]
  11. OMEPRAZOLE [Concomitant]
  12. PREDNISONE TAPER [Concomitant]
  13. THEOPHYLLINE [Concomitant]
  14. SPIRIVA [Concomitant]
  15. COUMADIN [Concomitant]

REACTIONS (6)
  - CONDITION AGGRAVATED [None]
  - CREATININE RENAL CLEARANCE DECREASED [None]
  - HAEMATOCRIT DECREASED [None]
  - HAEMATOMA [None]
  - INJECTION SITE BRUISING [None]
  - INTERNATIONAL NORMALISED RATIO DECREASED [None]
